FAERS Safety Report 7981212-7 (Version None)
Quarter: 2011Q4

REPORT INFORMATION
  Report Type: 
  Country: None (occurrence: None)
  Receive Date: 20111215
  Receipt Date: 20111207
  Transmission Date: 20120403
  Serious: Yes (Hospitalization)
  Sender: FDA-Public Use
  Company Number: US-RB-031365-11

PATIENT
  Age: 82 Year
  Sex: Male

DRUGS (6)
  1. ALBUTEROL [Concomitant]
  2. ZITHROMAX [Concomitant]
     Dosage: ONE CYCLE EVERY MONTH
  3. LASIX [Concomitant]
     Dosage: EVERY MORNING
  4. OSCAL [Concomitant]
  5. MUCINEX DM [Suspect]
     Indication: COUGH
     Route: 048
  6. AMOXICILLIN [Concomitant]
     Dosage: TAKES ONE CYCLE EVERY ONE MONTH

REACTIONS (4)
  - SELF-MEDICATION [None]
  - WRONG DRUG ADMINISTERED [None]
  - RESPIRATORY TRACT CONGESTION [None]
  - DYSPNOEA [None]
